FAERS Safety Report 10369478 (Version 1)
Quarter: 2014Q1

REPORT INFORMATION
  Report Type: Spontaneous
  Country: US (occurrence: None)
  Receive Date: 20140306
  Receipt Date: 20140306
  Transmission Date: 20141002
  Serious: Yes (Other)
  Sender: FDA-Public Use
  Company Number: 163-21880-13091033

PATIENT
  Age: 72 Year
  Sex: Male
  Weight: 74.84 kg

DRUGS (15)
  1. REVLIMID [Suspect]
     Indication: PLASMA CELL MYELOMA
     Route: 048
     Dates: start: 200911
  2. XANAX (ALPRAZOLAM) (TABLETS) [Concomitant]
  3. COUMADIN (WARFARIN SODIUM) (TABLETS) [Concomitant]
  4. NIASPAN (NICOTINIC ACID) (TABLETS) [Concomitant]
  5. ATENOLOL (ATENOLOL) (TABLETS) [Concomitant]
  6. PENICILLIN VK (PHENOXYMETHYLPENICILLIN POTASSIUM) [Concomitant]
  7. OMEPRAZOLE (OMEPRAZOLE) [Concomitant]
  8. ISOSORBIDE DINITRATE (ISOSORBIDE DINITRATE) [Concomitant]
  9. ZOFRAN (ONDANSETRON HYDROCHLORIDE) (TABLETS) [Concomitant]
  10. PROZAC (FLUOXETINE HYDROCHLORIDE) (CAPSULES) [Concomitant]
  11. SKELAXIN (METAXALONE) (TABLETS) [Concomitant]
  12. DEXILANT (DEXLANSOPRAZOLE) [Concomitant]
  13. LORTAB (VICODIN) [Concomitant]
  14. VITAMIN B12 (CYANOCOBALAMIN) [Concomitant]
  15. ABILIFY (ARIPIPRAZOLE) [Concomitant]

REACTIONS (3)
  - Dysarthria [None]
  - Irritability [None]
  - Sluggishness [None]
